FAERS Safety Report 9311193 (Version 1)
Quarter: 2013Q2

REPORT INFORMATION
  Report Type: Spontaneous
  Country: US (occurrence: None)
  Receive Date: 20130523
  Receipt Date: 20130523
  Transmission Date: 20140414
  Serious: No
  Sender: FDA-Public Use
  Company Number: None

PATIENT
  Age: 52 Year
  Sex: Female

DRUGS (2)
  1. AUGMENTIN [Suspect]
     Indication: SINUSITIS
     Dates: start: 20120208, end: 20120219
  2. AZITHROMYCIN [Suspect]
     Indication: SINUSITIS
     Dates: start: 20120123, end: 20120127

REACTIONS (7)
  - Cholelithiasis [None]
  - Haemangioma of liver [None]
  - Hepatic cyst [None]
  - Cholestasis [None]
  - Infarction [None]
  - Biliary tract disorder [None]
  - Drug-induced liver injury [None]
